FAERS Safety Report 12930210 (Version 1)
Quarter: 2016Q4

REPORT INFORMATION
  Report Type: Spontaneous
  Country: CN (occurrence: CN)
  Receive Date: 20161110
  Receipt Date: 20161110
  Transmission Date: 20170207
  Serious: Yes (Hospitalization)
  Sender: FDA-Public Use
  Company Number: CN-ELI_LILLY_AND_COMPANY-CN201611001254

PATIENT
  Sex: Male
  Weight: 74.5 kg

DRUGS (2)
  1. HUMALOG MIX50/50 [Suspect]
     Active Substance: INSULIN LISPRO
     Indication: DIABETES MELLITUS
     Dosage: 9 U, EACH MORNING
     Route: 058
     Dates: start: 2012, end: 201610
  2. HUMALOG MIX50/50 [Suspect]
     Active Substance: INSULIN LISPRO
     Dosage: 8 U, EACH EVENING
     Route: 058
     Dates: start: 2012, end: 201610

REACTIONS (6)
  - Blood glucose abnormal [Unknown]
  - Body height decreased [Unknown]
  - Dizziness [Unknown]
  - Skin ulcer [Unknown]
  - Hypoglycaemia [Unknown]
  - Palpitations [Unknown]
